FAERS Safety Report 18624108 (Version 2)
Quarter: 2021Q2

REPORT INFORMATION
  Report Type: Spontaneous
  Country: US (occurrence: US)
  Receive Date: 20201216
  Receipt Date: 20210607
  Transmission Date: 20210717
  Serious: No
  Sender: FDA-Public Use
  Company Number: US-PFIZER INC-2020496936

PATIENT
  Age: 61 Year
  Sex: Female

DRUGS (1)
  1. IBRANCE [Suspect]
     Active Substance: PALBOCICLIB
     Indication: BREAST CANCER FEMALE
     Dosage: 125 MG, CYCLIC (125 MG TAB DAILY 21 DAYS ON 7 OFF)
     Dates: start: 20200922

REACTIONS (2)
  - Lacrimation increased [Not Recovered/Not Resolved]
  - Rhinorrhoea [Unknown]
